FAERS Safety Report 4810572-0 (Version None)
Quarter: 2005Q4

REPORT INFORMATION
  Report Type: 
  Country: None (occurrence: None)
  Receive Date: 20051026
  Receipt Date: 20051017
  Transmission Date: 20060501
  Serious: Yes (Life-Threatening)
  Sender: FDA-Public Use
  Company Number: JP-BRISTOL-MYERS SQUIBB COMPANY-13147764

PATIENT
  Age: 37 Year
  Sex: Male

DRUGS (2)
  1. MAXIPIME [Suspect]
     Indication: PNEUMONIA
     Route: 042
     Dates: start: 20051016, end: 20051017
  2. MAXIPIME [Suspect]
     Indication: SEPSIS
     Route: 042
     Dates: start: 20051016, end: 20051017

REACTIONS (3)
  - LIVER DISORDER [None]
  - RENAL DISORDER [None]
  - RESPIRATORY DISORDER [None]
